FAERS Safety Report 16893974 (Version 1)
Quarter: 2019Q4

REPORT INFORMATION
  Report Type: Spontaneous
  Country: US (occurrence: US)
  Receive Date: 20190813
  Receipt Date: 20190813
  Transmission Date: 20200122
  Serious: Yes (Hospitalization)
  Sender: FDA-Public Use
  Company Number: None

PATIENT
  Age: 36 Year
  Sex: Male

DRUGS (4)
  1. HUMIRA [Suspect]
     Active Substance: ADALIMUMAB
     Indication: CROHN^S DISEASE
     Route: 058
     Dates: start: 20190327
  2. AZATHIOPRINE. [Concomitant]
     Active Substance: AZATHIOPRINE
  3. CLOSIDOGREL [Concomitant]
  4. ASPIRIN. [Concomitant]
     Active Substance: ASPIRIN

REACTIONS (2)
  - Cerebrovascular accident [None]
  - Cardiac operation [None]

NARRATIVE: CASE EVENT DATE: 20190728
